FAERS Safety Report 6064867-6 (Version None)
Quarter: 2009Q1

REPORT INFORMATION
  Report Type: 
  Country: None (occurrence: None)
  Receive Date: 20090204
  Receipt Date: 20090130
  Transmission Date: 20090719
  Serious: Yes (Death, Hospitalization)
  Sender: FDA-Public Use
  Company Number: FR-JNJFOC-20081203062

PATIENT
  Sex: Female

DRUGS (25)
  1. DOXORUBICIN HCL [Suspect]
     Dosage: CYCLE 2, 15-NOV-2008 WAS DAY 10
     Route: 042
  2. DOXORUBICIN HCL [Suspect]
     Indication: BREAST CANCER METASTATIC
     Route: 042
  3. CLODRONATE [Concomitant]
     Route: 065
  4. ZOLEDRONIC ACID [Concomitant]
     Dosage: EVERY 28 DAYS
     Route: 065
  5. ESOMEPRAZOLE MAGNESIUM [Concomitant]
     Route: 065
  6. OXYCODONE HCL [Concomitant]
     Indication: PAIN
     Route: 065
  7. FLUINDIONE [Concomitant]
     Route: 065
  8. PRAVASTATIN [Concomitant]
     Route: 065
  9. ALLOPURINOL [Concomitant]
     Route: 065
  10. PREDNISONE [Concomitant]
     Dosage: FOR 15 DAYS
     Route: 065
  11. PREDNISONE [Concomitant]
     Dosage: FOR 15 DAYS
     Route: 065
  12. ALDACTAZINE [Concomitant]
     Route: 065
  13. ZOLPIDEM [Concomitant]
     Route: 065
  14. PYRIDOXINE [Concomitant]
     Route: 065
  15. UNSPECIFIED LOW-MOLECULAR WEIGHT HEPARIN [Concomitant]
     Route: 065
  16. HYDROMORPHONE HCL [Concomitant]
     Route: 065
  17. PREGABALIN [Concomitant]
     Route: 065
  18. ATENOLOL [Concomitant]
     Route: 065
  19. FERROUS SULFATE TAB [Concomitant]
     Route: 065
  20. FOLIC ACID [Concomitant]
     Route: 065
  21. EFFEXOR [Concomitant]
     Route: 065
  22. TRIFLUCAN [Concomitant]
     Route: 065
  23. MOTILIUM [Concomitant]
     Route: 065
  24. TRANSIPEG [Concomitant]
     Route: 065
  25. FORLAX [Concomitant]
     Route: 065

REACTIONS (2)
  - NEUTROPENIC SEPSIS [None]
  - THROMBOCYTOPENIA [None]
